FAERS Safety Report 4274695-X (Version None)
Quarter: 2004Q1

REPORT INFORMATION
  Report Type: 
  Country: None (occurrence: None)
  Receive Date: 20040120
  Receipt Date: 20040120
  Transmission Date: 20041129
  Serious: Yes (Life-Threatening, Disabling)
  Sender: FDA-Public Use
  Company Number: None

PATIENT
  Age: 37 Year
  Sex: Male
  Weight: 77.1115 kg

DRUGS (4)
  1. AUGMENTIN XR [Suspect]
     Indication: INFECTION
     Dosage: TWICE A DAY AC 1000/62.5
     Dates: start: 20030708, end: 20040708
  2. IMMODIUM OC [Concomitant]
  3. KEOPECTATE [Concomitant]
  4. PEPTO BISMOL [Concomitant]

REACTIONS (4)
  - DIARRHOEA [None]
  - DYSPEPSIA [None]
  - NAUSEA [None]
  - RETCHING [None]
